FAERS Safety Report 10045965 (Version 1)
Quarter: 2014Q1

REPORT INFORMATION
  Report Type: Spontaneous
  Country: US (occurrence: US)
  Receive Date: 20140330
  Receipt Date: 20140330
  Transmission Date: 20141002
  Serious: No
  Sender: FDA-Public Use
  Company Number: US-009507513-1403USA013075

PATIENT
  Age: 71 Year
  Sex: Female

DRUGS (2)
  1. FOSAMAX [Suspect]
     Indication: OSTEOPOROSIS PROPHYLAXIS
     Dosage: UNK, QW
     Dates: start: 20140108, end: 20140312
  2. LEVOTHROID [Concomitant]

REACTIONS (2)
  - Renal pain [Recovered/Resolved]
  - Constipation [Recovering/Resolving]
